FAERS Safety Report 4277222-6 (Version None)
Quarter: 2004Q1

REPORT INFORMATION
  Report Type: 
  Country: None (occurrence: None)
  Receive Date: 20040120
  Receipt Date: 20040107
  Transmission Date: 20041129
  Serious: Yes (Other)
  Sender: FDA-Public Use
  Company Number: 2003114581

PATIENT
  Age: 39 Year
  Sex: Female
  Weight: 56 kg

DRUGS (6)
  1. GEODON [Suspect]
     Indication: AFFECTIVE DISORDER
     Dosage: 40 MG (DAILY), ORAL (SEE IMAGE)
     Route: 048
  2. VALPROATE SODIUM [Concomitant]
  3. LOFEPRAMINE [Concomitant]
  4. ZOPICLONE [Concomitant]
  5. FOLIC ACID [Concomitant]
  6. CITALOPRAM HYDROBROMIDE [Concomitant]

REACTIONS (6)
  - ANOREXIA [None]
  - DRUG WITHDRAWAL SYNDROME [None]
  - FEELING ABNORMAL [None]
  - HEADACHE [None]
  - NAUSEA [None]
  - TREMOR [None]
